FAERS Safety Report 26093632 (Version 1)
Quarter: 2025Q4

REPORT INFORMATION
  Report Type: Spontaneous
  Country: US (occurrence: US)
  Receive Date: 20251126
  Receipt Date: 20251126
  Transmission Date: 20260118
  Serious: No
  Sender: BRISTOL-MYERS SQUIBB COMPANY
  Company Number: US-BRISTOL-MYERS SQUIBB COMPANY-2025-159476

PATIENT
  Age: 66 Year
  Sex: Female
  Weight: 61.23 kg

DRUGS (2)
  1. ELIQUIS [Suspect]
     Active Substance: APIXABAN
     Indication: Thrombosis
     Route: 048
     Dates: start: 20251114, end: 20251120
  2. ELIQUIS [Suspect]
     Active Substance: APIXABAN
     Dosage: DOSE : 5MG;     FREQ : ONE 5MG TABLET IN THE AM AND ONE IN THE PM.
     Route: 048
     Dates: start: 20251121

REACTIONS (1)
  - Off label use [Unknown]
